FAERS Safety Report 6788063-X (Version None)
Quarter: 2010Q2

REPORT INFORMATION
  Report Type: 
  Country: None (occurrence: None)
  Receive Date: 20100623
  Receipt Date: 20080126
  Transmission Date: 20101027
  Serious: No
  Sender: FDA-Public Use
  Company Number: US-PFIZER INC-2007094642

PATIENT
  Sex: Female

DRUGS (1)
  1. DIFLUCAN [Suspect]
     Indication: FUNGAL INFECTION

REACTIONS (13)
  - ABDOMINAL DISTENSION [None]
  - BLOOD GLUCOSE ABNORMAL [None]
  - CONFUSIONAL STATE [None]
  - DIARRHOEA [None]
  - HEPATIC FUNCTION ABNORMAL [None]
  - HORMONE LEVEL ABNORMAL [None]
  - PAIN [None]
  - PARAESTHESIA [None]
  - RENAL DISORDER [None]
  - SKIN BURNING SENSATION [None]
  - THYROID DISORDER [None]
  - VISION BLURRED [None]
  - WEIGHT INCREASED [None]
